FAERS Safety Report 8538961-1 (Version None)
Quarter: 2012Q3

REPORT INFORMATION
  Report Type: 
  Country: None (occurrence: None)
  Receive Date: 20120726
  Receipt Date: 20120720
  Transmission Date: 20120928
  Serious: Yes (Other)
  Sender: FDA-Public Use
  Company Number: PHEH2012US013171

PATIENT

DRUGS (1)
  1. RECLAST [Suspect]
     Dosage: 5 MG/100 ML
     Route: 042

REACTIONS (2)
  - EYE INFLAMMATION [None]
  - PARALYSIS [None]
